FAERS Safety Report 11883556 (Version 1)
Quarter: 2015Q4

REPORT INFORMATION
  Report Type: Report from Study
  Country: IN (occurrence: IN)
  Receive Date: 20151231
  Receipt Date: 20151231
  Transmission Date: 20160305
  Serious: Yes (Death)
  Sender: FDA-Public Use
  Company Number: PHHY2015IN171143

PATIENT
  Age: 39 Year
  Sex: Female
  Weight: 40 kg

DRUGS (2)
  1. TACSANT [Suspect]
     Active Substance: TACROLIMUS
     Indication: IMMUNOSUPPRESSION
     Dosage: 0.5 MG, UNK
     Route: 048
     Dates: start: 20130125
  2. MYFORTIC [Suspect]
     Active Substance: MYCOPHENOLATE SODIUM
     Indication: IMMUNOSUPPRESSION
     Dosage: 360 MG, UNK
     Route: 048
     Dates: start: 20130125

REACTIONS (1)
  - Fall [Fatal]

NARRATIVE: CASE EVENT DATE: 20151227
